FAERS Safety Report 4680458-3 (Version None)
Quarter: 2005Q2

REPORT INFORMATION
  Report Type: 
  Country: None (occurrence: None)
  Receive Date: 20050602
  Receipt Date: 20050525
  Transmission Date: 20051028
  Serious: Yes (Hospitalization)
  Sender: FDA-Public Use
  Company Number: PR-MERCK-0505USA02993

PATIENT
  Age: 5 Year
  Sex: Male

DRUGS (1)
  1. SINGULAIR [Suspect]
     Indication: ASTHMA
     Route: 048
     Dates: start: 20030101

REACTIONS (5)
  - EAR INFECTION [None]
  - PRESCRIBED OVERDOSE [None]
  - RHINITIS [None]
  - SINUS DISORDER [None]
  - TONSILLAR DISORDER [None]
